FAERS Safety Report 6235600-X (Version None)
Quarter: 2009Q2

REPORT INFORMATION
  Report Type: 
  Country: None (occurrence: None)
  Receive Date: 20090618
  Receipt Date: 20090608
  Transmission Date: 20091009
  Serious: Yes (Other)
  Sender: FDA-Public Use
  Company Number: US-AMGEN-TCS346653

PATIENT
  Sex: Female
  Weight: 55.8 kg

DRUGS (19)
  1. ENBREL [Suspect]
     Indication: RHEUMATOID ARTHRITIS
     Route: 058
     Dates: start: 19990301
  2. METHOTREXATE [Concomitant]
     Dates: start: 20000101
  3. FORTEO [Concomitant]
  4. SYNTHROID [Concomitant]
  5. PREMARIN [Concomitant]
  6. LOTREL [Concomitant]
  7. PLAVIX [Concomitant]
  8. MIACALCIN [Concomitant]
  9. DARVOCET-N 100 [Concomitant]
  10. FOLIC ACID [Concomitant]
  11. TYLENOL (CAPLET) [Concomitant]
  12. MULTIVITAMIN [Concomitant]
  13. CALCIUM WITH VITAMIN D [Concomitant]
  14. VICON FORTE [Concomitant]
  15. PLATINOL [Concomitant]
  16. ASPIRIN [Concomitant]
  17. DEPO-MEDROL [Concomitant]
     Route: 030
  18. NSAIDS [Concomitant]
  19. UNSPECIFIED STEROIDS [Concomitant]

REACTIONS (20)
  - ABDOMINAL HERNIA [None]
  - CAT SCRATCH DISEASE [None]
  - CYSTITIS [None]
  - DIARRHOEA [None]
  - FATIGUE [None]
  - INJECTION SITE IRRITATION [None]
  - INJECTION SITE PAIN [None]
  - INSOMNIA [None]
  - KNEE ARTHROPLASTY [None]
  - LETHARGY [None]
  - LOCALISED INFECTION [None]
  - MUSCULOSKELETAL STIFFNESS [None]
  - NECK PAIN [None]
  - OSTEOPOROTIC FRACTURE [None]
  - PAIN [None]
  - PAIN IN EXTREMITY [None]
  - RESTLESS LEGS SYNDROME [None]
  - RHEUMATOID ARTHRITIS [None]
  - SHOULDER ARTHROPLASTY [None]
  - SYNOVITIS [None]
